FAERS Safety Report 8033614-0 (Version None)
Quarter: 2011Q4

REPORT INFORMATION
  Report Type: 
  Country: None (occurrence: None)
  Receive Date: 20111202
  Receipt Date: 20110221
  Transmission Date: 20120403
  Serious: Yes (Other)
  Sender: FDA-Public Use
  Company Number: WAES 1102USA02843

PATIENT
  Age: 63 Year
  Sex: Female

DRUGS (1)
  1. FOSAMAX [Suspect]
     Indication: OSTEOPOROSIS
     Dosage: UNK/UNK/PO
     Route: 048
     Dates: start: 19990101, end: 20090201

REACTIONS (5)
  - GINGIVAL SWELLING [None]
  - OSTEONECROSIS OF JAW [None]
  - TOOTH DISORDER [None]
  - TOOTH INFECTION [None]
  - BONE LOSS [None]
